FAERS Safety Report 8223787-9 (Version None)
Quarter: 2012Q1

REPORT INFORMATION
  Report Type: 
  Country: None (occurrence: None)
  Receive Date: 20120321
  Receipt Date: 20120321
  Transmission Date: 20120608
  Serious: Yes (Other)
  Sender: FDA-Public Use
  Company Number: None

PATIENT
  Sex: Female
  Weight: 72.574 kg

DRUGS (4)
  1. SERTRALINE HCI TABLETS [Suspect]
     Indication: POST CONCUSSION SYNDROME
     Dosage: 25 MG
     Route: 048
  2. SERTRALINE HCI TABLETS [Suspect]
     Indication: ANXIETY
     Dosage: 25 MG
     Route: 048
  3. SERTRALINE HCI TABLETS [Suspect]
     Indication: DEPRESSION
     Dosage: 25 MG
     Route: 048
  4. SERTRALINE HCI TABLETS [Suspect]
     Dosage: 50
     Route: 048

REACTIONS (7)
  - ASTHENIA [None]
  - NAUSEA [None]
  - MALAISE [None]
  - PRODUCT SUBSTITUTION ISSUE [None]
  - FATIGUE [None]
  - DIARRHOEA [None]
  - ANXIETY [None]
